FAERS Safety Report 5912611-2 (Version None)
Quarter: 2008Q3

REPORT INFORMATION
  Report Type: 
  Country: None (occurrence: None)
  Receive Date: 20080919
  Receipt Date: 20080714
  Transmission Date: 20090109
  Serious: Yes (Death)
  Sender: FDA-Public Use
  Company Number: 2008-04208

PATIENT
  Age: 23 Year
  Sex: Male
  Weight: 66.7 kg

DRUGS (1)
  1. FENTANYL [Suspect]
     Indication: DRUG ABUSE
     Dosage: TRANSDERMAL
     Route: 062
     Dates: end: 20080601

REACTIONS (2)
  - ACCIDENTAL OVERDOSE [None]
  - DRUG ABUSE [None]
